FAERS Safety Report 26089532 (Version 1)
Quarter: 2025Q4

REPORT INFORMATION
  Report Type: Spontaneous
  Country: US (occurrence: US)
  Receive Date: 20251125
  Receipt Date: 20251125
  Transmission Date: 20260118
  Serious: Yes (Life-Threatening, Hospitalization, Other)
  Sender: SERVIER
  Company Number: US-SERVIER-S25016959

PATIENT

DRUGS (1)
  1. ASPARLAS [Suspect]
     Active Substance: CALASPARGASE PEGOL-MKNL
     Indication: Acute lymphocytic leukaemia
     Dosage: 3750 U
     Route: 042
     Dates: start: 20231010, end: 20231010

REACTIONS (2)
  - Anaphylactic reaction [Recovered/Resolved]
  - Neutralising antibodies positive [Recovered/Resolved]

NARRATIVE: CASE EVENT DATE: 20231010
